FAERS Safety Report 9132044 (Version 1)
Quarter: 2013Q1

REPORT INFORMATION
  Report Type: Report from Study
  Country: US (occurrence: US)
  Receive Date: 20130301
  Receipt Date: 20130301
  Transmission Date: 20140127
  Serious: No
  Sender: FDA-Public Use
  Company Number: US-MYLANLABS-2012S1001366

PATIENT
  Age: 50 Year
  Sex: Male

DRUGS (5)
  1. AMNESTEEM CAPSULES [Suspect]
     Indication: HIDRADENITIS
     Route: 048
     Dates: start: 20111102, end: 20111215
  2. CLARAVIS [Suspect]
     Indication: HIDRADENITIS
     Route: 048
     Dates: end: 20111215
  3. NEURONTIN [Concomitant]
  4. METFORMIN [Concomitant]
  5. LANTUS [Concomitant]
     Dosage: AS DIRECTED

REACTIONS (1)
  - Back pain [Recovered/Resolved]
